FAERS Safety Report 7233337-1 (Version None)
Quarter: 2011Q1

REPORT INFORMATION
  Report Type: 
  Country: None (occurrence: None)
  Receive Date: 20110119
  Receipt Date: 20110105
  Transmission Date: 20110831
  Serious: Yes (Other)
  Sender: FDA-Public Use
  Company Number: PHHY2010CA87143

PATIENT
  Age: 14 Year
  Sex: Female

DRUGS (1)
  1. ACETYLSALICYLIC ACID [Suspect]

REACTIONS (18)
  - INTENTIONAL OVERDOSE [None]
  - MENTAL STATUS CHANGES [None]
  - COMA SCALE ABNORMAL [None]
  - LETHARGY [None]
  - VOMITING [None]
  - HYPERHIDROSIS [None]
  - ANION GAP INCREASED [None]
  - BLOOD PRESSURE INCREASED [None]
  - DEPRESSED LEVEL OF CONSCIOUSNESS [None]
  - METABOLIC ACIDOSIS [None]
  - BODY TEMPERATURE DECREASED [None]
  - SUICIDE ATTEMPT [None]
  - TREMOR [None]
  - RESPIRATORY RATE INCREASED [None]
  - MALAISE [None]
  - SCREAMING [None]
  - TACHYPNOEA [None]
  - PAIN [None]
